FAERS Safety Report 9934997 (Version 3)
Quarter: 2014Q2

REPORT INFORMATION
  Report Type: Spontaneous
  Country: US (occurrence: US)
  Receive Date: 20140228
  Receipt Date: 20140627
  Transmission Date: 20141212
  Serious: Yes (Hospitalization, Other)
  Sender: FDA-Public Use
  Company Number: US-ELI_LILLY_AND_COMPANY-US201402006889

PATIENT
  Age: 62 Year
  Sex: Male
  Weight: 87.44 kg

DRUGS (8)
  1. ALIMTA [Suspect]
     Indication: LUNG ADENOCARCINOMA STAGE IV
     Dosage: 1070 MG, CYCLICAL
     Route: 042
     Dates: start: 20140212
  2. PLAVIX [Concomitant]
     Dosage: 75 MG, QD
  3. ATENOLOL [Concomitant]
  4. PROTONIX [Concomitant]
     Indication: NAUSEA
     Dosage: 40 MG, BID
  5. ASPIRIN [Concomitant]
     Dosage: 81 MG, QOD
  6. DEXAMETHASONE [Concomitant]
     Dosage: 2 DF, BID
     Route: 048
     Dates: start: 20140204
  7. VITAMIN B-12 [Concomitant]
     Dosage: UNK, UNKNOWN
     Route: 030
     Dates: start: 20140204
  8. FOLIC ACID [Concomitant]
     Dosage: 1 MG, UNK
     Route: 048
     Dates: start: 20140204

REACTIONS (3)
  - Chest pain [Recovered/Resolved]
  - Heart rate decreased [Recovered/Resolved]
  - Rash maculo-papular [Recovered/Resolved]
